FAERS Safety Report 8170278 (Version 4)
Quarter: 2013Q4

REPORT INFORMATION
  Report Type: Spontaneous
  Country: GB (occurrence: None)
  Receive Date: 20110922
  Receipt Date: 20131205
  Transmission Date: 20140711
  Serious: Yes (Life-Threatening, Hospitalization, Disabling)
  Sender: FDA-Public Use
  Company Number: GB-DEXPHARM-20111399

PATIENT
  Age: 30 Year
  Sex: Female

DRUGS (2)
  1. CODEINE [Suspect]
     Indication: ANALGESIC THERAPY
     Dosage: 38 DAY, 1 IN 1 DAYS, ORAL
     Route: 048
     Dates: start: 20110615, end: 20110723
  2. PARACETAMOL [Concomitant]
     Indication: MUSCLE SPASMS

REACTIONS (99)
  - Drooling [None]
  - Hypoaesthesia [None]
  - Pruritus [None]
  - Arthralgia [None]
  - Neuroleptic malignant syndrome [None]
  - Eye pain [None]
  - Muscle rigidity [None]
  - Aphasia [None]
  - Tinnitus [None]
  - Gait disturbance [None]
  - Myalgia [None]
  - Nightmare [None]
  - Contusion [None]
  - Malaise [None]
  - Muscle spasms [None]
  - Mania [None]
  - Restless legs syndrome [None]
  - Pregnancy [None]
  - Maternal exposure during pregnancy [None]
  - Dyspnoea [None]
  - Fatigue [None]
  - Musculoskeletal stiffness [None]
  - Hypotonia [None]
  - Tremor [None]
  - Feeling jittery [None]
  - Convulsion [None]
  - Premature delivery [None]
  - Road traffic accident [None]
  - Neck pain [None]
  - Back pain [None]
  - Sleep disorder [None]
  - Anxiety [None]
  - Headache [None]
  - Feeling of despair [None]
  - Disturbance in attention [None]
  - Restlessness [None]
  - Asthenia [None]
  - Confusional state [None]
  - Muscle disorder [None]
  - Hypersomnia [None]
  - Agitation [None]
  - Emotional disorder [None]
  - Irritability [None]
  - Visual impairment [None]
  - Depression [None]
  - Suicidal ideation [None]
  - Decreased appetite [None]
  - Dizziness [None]
  - Blood sodium decreased [None]
  - Hyperhidrosis [None]
  - Hallucination [None]
  - Depersonalisation [None]
  - H1N1 influenza [None]
  - Delirium [None]
  - Cyanosis [None]
  - Feeling abnormal [None]
  - Menstruation irregular [None]
  - Mood swings [None]
  - Hallucination, auditory [None]
  - Vomiting [None]
  - Insomnia [None]
  - General physical health deterioration [None]
  - Paraesthesia [None]
  - Dyskinesia [None]
  - Psychotic disorder [None]
  - Parosmia [None]
  - Hypoaesthesia oral [None]
  - Incontinence [None]
  - Urinary retention [None]
  - Pallor [None]
  - Balance disorder [None]
  - Swollen tongue [None]
  - Vision blurred [None]
  - Speech disorder [None]
  - Swelling face [None]
  - Lip swelling [None]
  - Oedema mouth [None]
  - Gastric pH decreased [None]
  - VIIth nerve paralysis [None]
  - Cogwheel rigidity [None]
  - Schizophrenia [None]
  - Scratch [None]
  - Pupillary reflex impaired [None]
  - Incoherent [None]
  - Pain in extremity [None]
  - Pain [None]
  - Toxicity to various agents [None]
  - Paralysis [None]
  - Drug withdrawal syndrome [None]
  - Tachycardia [None]
  - Drug interaction [None]
  - Nervous system disorder [None]
  - Somnolence [None]
  - No therapeutic response [None]
  - Dyspepsia [None]
  - Neuralgia [None]
  - Extrapyramidal disorder [None]
  - Serotonin syndrome [None]
  - Mental disorder [None]
